FAERS Safety Report 7890068-2 (Version None)
Quarter: 2011Q4

REPORT INFORMATION
  Report Type: 
  Country: None (occurrence: None)
  Receive Date: 20111103
  Receipt Date: 20111101
  Transmission Date: 20120403
  Serious: Yes (Death, Life-Threatening, Hospitalization, Other)
  Sender: FDA-Public Use
  Company Number: US-AMGEN-USACT2011038789

PATIENT
  Age: 18 Year
  Sex: Female
  Weight: 71.7 kg

DRUGS (3)
  1. ETANERCEPT [Suspect]
     Indication: GRAFT VERSUS HOST DISEASE
     Dosage: 25 MG, 2 TIMES/WK
     Route: 058
     Dates: start: 20110516, end: 20110704
  2. MEDROL [Suspect]
     Dosage: UNK
     Dates: start: 20110531, end: 20110728
  3. TACROLIMUS [Concomitant]

REACTIONS (2)
  - HYPOXIA [None]
  - ACUTE GRAFT VERSUS HOST DISEASE [None]
